FAERS Safety Report 4943994-8 (Version None)
Quarter: 2006Q1

REPORT INFORMATION
  Report Type: 
  Country: None (occurrence: None)
  Receive Date: 20060310
  Receipt Date: 20060306
  Transmission Date: 20060701
  Serious: Yes (Death, Life-Threatening, Hospitalization, Disabling)
  Sender: FDA-Public Use
  Company Number: A0596297A

PATIENT
  Sex: Male

DRUGS (3)
  1. EPZICOM TABLET (ABACAVIR S04 + LAMIVUDINE) [Suspect]
     Indication: HIV INFECTION
     Dosage: ORAL
     Route: 048
  2. KALETRA [Concomitant]
  3. TENOFOVIR DISOPROXIL FUMA [Concomitant]

REACTIONS (2)
  - HYPERSENSITIVITY [None]
  - TREATMENT NONCOMPLIANCE [None]
